FAERS Safety Report 9601267 (Version 2)
Quarter: 2013Q4

REPORT INFORMATION
  Report Type: Report from Study
  Country: US (occurrence: US)
  Receive Date: 20131006
  Receipt Date: 20131006
  Transmission Date: 20140711
  Serious: Yes (Hospitalization)
  Sender: FDA-Public Use
  Company Number: PHEH2013US008907

PATIENT
  Age: 66 Year
  Sex: Male

DRUGS (16)
  1. EXELON PATCH [Suspect]
     Indication: DEMENTIA ALZHEIMER^S TYPE
     Dosage: 4.6 MG (PATCH 5 CM2)
     Route: 062
     Dates: start: 2011, end: 2011
  2. EXELON PATCH [Suspect]
     Dosage: 9.5 MG (PATCH 10 CM2), DAILY
     Route: 062
     Dates: start: 20130201
  3. EXELON PATCH [Suspect]
     Dosage: 13.3 MG, (PATCH 15 CM2)
     Route: 062
     Dates: start: 20130602
  4. EXELON PATCH [Suspect]
     Dosage: 9.5 MG, (PATCH 10 C2M) DAILY
     Route: 062
     Dates: start: 20130622
  5. VICTOZA [Concomitant]
     Dosage: 1.8 MG, UNK
  6. METFORMIN [Concomitant]
     Dosage: 1000 MG, BID
  7. BABY ASPIRIN [Concomitant]
     Dosage: 81 MG, DAILY
  8. LANTUS [Concomitant]
     Dosage: 18 U, UNK
  9. PROPRANOLOL [Concomitant]
     Dosage: 20 MG, UNK
  10. MELATONIN [Concomitant]
     Dosage: 3 MG, UNK
  11. METOLAZONE [Concomitant]
     Dosage: 5 MG, UNK (FOR 3 DAYS)
  12. CARBIDOPA, LEVODOPA [Concomitant]
     Dosage: 4 DF, 2 IN AM, 1 AT NOON, 1 IN EVENING
  13. LOSARTAN [Concomitant]
  14. GLIMEPIRIDE [Concomitant]
  15. SINEMET [Concomitant]
     Dosage: UNK
  16. ZAROXOLYN [Concomitant]
     Dosage: UNK

REACTIONS (13)
  - Herpes zoster [Recovering/Resolving]
  - Rash [Recovering/Resolving]
  - Confusional state [Recovering/Resolving]
  - Fall [Recovering/Resolving]
  - Fluid retention [Unknown]
  - Blood insulin increased [Unknown]
  - Urine output increased [Unknown]
  - Movement disorder [Unknown]
  - Local swelling [Recovered/Resolved]
  - Rash macular [Unknown]
  - Amnesia [Unknown]
  - Hallucination [Unknown]
  - Headache [Recovered/Resolved]
